FAERS Safety Report 18541655 (Version 1)
Quarter: 2020Q4

REPORT INFORMATION
  Report Type: Spontaneous
  Country: US (occurrence: US)
  Receive Date: 20201124
  Receipt Date: 20201124
  Transmission Date: 20210114
  Serious: Yes (Death, Other)
  Sender: FDA-Public Use
  Company Number: US-PURDUE-USA-2020-0162863

PATIENT
  Sex: Female

DRUGS (6)
  1. OXYCODONE HCL TABLETS (RHODES 91-490) [Suspect]
     Active Substance: OXYCODONE HYDROCHLORIDE
     Indication: NERVE COMPRESSION
     Route: 048
  2. OXYCODONE/ ACETAMINOPHEN TABLETS [Suspect]
     Active Substance: ACETAMINOPHEN\OXYCODONE HYDROCHLORIDE
     Indication: NERVE COMPRESSION
     Route: 048
  3. OXYFAST [Suspect]
     Active Substance: OXYCODONE
     Indication: NERVE COMPRESSION
     Route: 065
  4. OXYCONTIN [Suspect]
     Active Substance: OXYCODONE HYDROCHLORIDE
     Indication: NERVE COMPRESSION
     Route: 048
  5. OXYIR [Suspect]
     Active Substance: OXYCODONE HYDROCHLORIDE
     Indication: NERVE COMPRESSION
     Route: 065
  6. OXYCODONE HCL CR TABLETS (SIMILAR TO NDA 22-272) [Suspect]
     Active Substance: OXYCODONE HYDROCHLORIDE
     Indication: NERVE COMPRESSION
     Route: 048

REACTIONS (10)
  - Bacteraemia [Fatal]
  - Drug dependence [Unknown]
  - Coronary artery disease [Fatal]
  - Diabetes mellitus [Unknown]
  - Brain injury [Fatal]
  - Depression [Unknown]
  - Mood swings [Unknown]
  - Fatigue [Unknown]
  - Heart injury [Unknown]
  - Anxiety [Unknown]
